FAERS Safety Report 7991255-5 (Version None)
Quarter: 2011Q4

REPORT INFORMATION
  Report Type: 
  Country: None (occurrence: None)
  Receive Date: 20111219
  Receipt Date: 20111213
  Transmission Date: 20120403
  Serious: Yes (Other)
  Sender: FDA-Public Use
  Company Number: IT-GLAXOSMITHKLINE-B0769958A

PATIENT
  Sex: Female

DRUGS (6)
  1. MADOPAR [Suspect]
     Indication: PARKINSONISM
     Route: 048
     Dates: start: 20090130, end: 20111030
  2. AZILECT [Suspect]
     Indication: PARKINSONISM
     Dosage: 1TAB PER DAY
     Route: 048
     Dates: start: 20111015, end: 20111030
  3. UNKNOWN DRUG [Concomitant]
     Indication: PRODUCT USED FOR UNKNOWN INDICATION
     Route: 065
  4. REQUIP [Suspect]
     Indication: PARKINSONISM
     Dosage: 1TAB PER DAY
     Route: 048
     Dates: start: 20100430, end: 20111030
  5. RAMIPRIL [Concomitant]
     Indication: HYPERTENSION
     Dosage: 1TAB PER DAY
     Route: 048
     Dates: start: 20080101
  6. BONIVA [Concomitant]
     Indication: PRODUCT USED FOR UNKNOWN INDICATION
     Route: 042

REACTIONS (2)
  - HEAD INJURY [None]
  - SYNCOPE [None]
